FAERS Safety Report 8191883-0 (Version None)
Quarter: 2012Q1

REPORT INFORMATION
  Report Type: 
  Country: None (occurrence: None)
  Receive Date: 20120307
  Receipt Date: 20120222
  Transmission Date: 20120608
  Serious: Yes (Hospitalization, Other)
  Sender: FDA-Public Use
  Company Number: PHEH2011US011097

PATIENT
  Sex: Male
  Weight: 89.796 kg

DRUGS (19)
  1. BACTRIM DS [Concomitant]
     Dosage: 1 DF, BID
     Route: 048
  2. AMLODIPINE BESYLATE [Concomitant]
     Dosage: 1 DF DAILY
     Route: 048
  3. EXJADE [Suspect]
     Dosage: 500 MG DAILY
     Route: 048
     Dates: start: 20110328
  4. SPIRULINA [Concomitant]
     Dosage: 1500 MG, BID
  5. ANUSOL HC [Concomitant]
     Dosage: 1 DF, PRN
  6. PROMETHAZINE HYDROCHLORIDE [Concomitant]
     Indication: NAUSEA
     Dosage: 1 DF, Q4H (PRN)
     Route: 048
  7. ALBUTEROL SULFATE [Concomitant]
     Dosage: 1 DF, 3 TO 4 HOURS PRN
  8. ATACAND [Concomitant]
     Dosage: 1 DF DAILY
     Route: 048
  9. FISH OIL [Concomitant]
     Dosage: 1 DF DAILY
     Route: 048
  10. FUROSEMIDE [Concomitant]
     Dosage: 1 DF DAILY
     Route: 048
  11. VITAMIN D [Concomitant]
     Dosage: 1 DF DAILY
     Route: 048
  12. MULTI-VITAMINS [Concomitant]
     Dosage: 1 DF DAILY
     Route: 048
  13. VITAMIN B-12 [Concomitant]
     Dosage: 1 DFDAILY
     Route: 048
  14. BLOOD TRANSFUSION, AUXILIARY PRODUCTS [Concomitant]
     Dosage: FREQUENCY REDUCED
  15. FOLIC ACID [Concomitant]
     Dosage: 1 DFDAILY
     Route: 048
  16. SERTRALINE HYDROCHLORIDE [Concomitant]
     Dosage: 1 DF DAILY
     Route: 048
  17. MUCINEX [Concomitant]
     Dosage: 600 MG Q 12HOURS
     Route: 048
  18. NYSTATIN [Concomitant]
  19. EXJADE [Suspect]
     Dosage: 1000 MG DAILY
     Route: 048
     Dates: start: 20110415

REACTIONS (24)
  - PLATELET DISORDER [None]
  - RED BLOOD CELL ELLIPTOCYTES PRESENT [None]
  - PNEUMONIA [None]
  - BODY MASS INDEX INCREASED [None]
  - PLATELET COUNT DECREASED [None]
  - ANISOCYTOSIS [None]
  - CARDIAC MURMUR [None]
  - ECCHYMOSIS [None]
  - BLOOD PRESSURE DIASTOLIC DECREASED [None]
  - HAEMORRHOIDAL HAEMORRHAGE [None]
  - DIARRHOEA [None]
  - DYSPNOEA [None]
  - OVERWEIGHT [None]
  - ARTHRALGIA [None]
  - CONSTIPATION [None]
  - PARAESTHESIA [None]
  - ASTHENIA [None]
  - PYREXIA [None]
  - DECREASED ACTIVITY [None]
  - VARICOSE VEIN [None]
  - BLOOD PRESSURE SYSTOLIC INCREASED [None]
  - FATIGUE [None]
  - OEDEMA PERIPHERAL [None]
  - HEART RATE IRREGULAR [None]
